FAERS Safety Report 9394950 (Version 1)
Quarter: 2013Q3

REPORT INFORMATION
  Report Type: Spontaneous
  Country: US (occurrence: US)
  Receive Date: 20130711
  Receipt Date: 20130711
  Transmission Date: 20140515
  Serious: No
  Sender: FDA-Public Use
  Company Number: US-COVIDIEN/TYCO HEALTHCARE/MALLINCKRODT-T201301670

PATIENT
  Age: 24 Year
  Sex: Female
  Weight: 56.69 kg

DRUGS (2)
  1. OXYCODONE [Suspect]
     Indication: PAIN
     Dosage: 10 MG Q 4 HRS
     Route: 048
     Dates: start: 20130312, end: 20130321
  2. OXYCODONE [Suspect]
     Indication: ALVEOLAR OSTEITIS

REACTIONS (1)
  - Drug screen positive [Unknown]
